FAERS Safety Report 8205008-6 (Version None)
Quarter: 2012Q1

REPORT INFORMATION
  Report Type: 
  Country: None (occurrence: None)
  Receive Date: 20120313
  Receipt Date: 20120302
  Transmission Date: 20120608
  Serious: Yes (Hospitalization, Other)
  Sender: FDA-Public Use
  Company Number: GB-JNJFOC-20120109793

PATIENT
  Sex: Female

DRUGS (4)
  1. REMICADE [Suspect]
     Route: 042
     Dates: start: 20100101
  2. METHOTREXATE [Concomitant]
     Dosage: INITIATED ON 24-DEC (YEAR UNSPECIFIED)
     Route: 065
  3. METHOTREXATE [Concomitant]
     Dosage: DOSE ON 24-DEC (YEAR UNSPECIFIED).
     Route: 065
  4. REMICADE [Suspect]
     Indication: CROHN'S DISEASE
     Dosage: LAST 2 INFUSIONS
     Route: 042

REACTIONS (1)
  - CEREBRAL INFARCTION [None]
